FAERS Safety Report 7191527-0 (Version None)
Quarter: 2010Q4

REPORT INFORMATION
  Report Type: 
  Country: None (occurrence: None)
  Receive Date: 20101223
  Receipt Date: 20101208
  Transmission Date: 20110411
  Serious: Yes (Life-Threatening, Hospitalization)
  Sender: FDA-Public Use
  Company Number: FR-BAYER-2010-002662

PATIENT
  Sex: Male

DRUGS (1)
  1. ULTRAVIST 150 [Suspect]
     Indication: ANGIOGRAM
     Dosage: 100 ML, ONCE
     Route: 042
     Dates: start: 20101130, end: 20101130

REACTIONS (3)
  - CARDIO-RESPIRATORY ARREST [None]
  - LOCALISED OEDEMA [None]
  - PRURITUS [None]
